FAERS Safety Report 15561818 (Version 4)
Quarter: 2019Q4

REPORT INFORMATION
  Report Type: Spontaneous
  Country: US (occurrence: US)
  Receive Date: 20181029
  Receipt Date: 20191210
  Transmission Date: 20200122
  Serious: Yes (Hospitalization, Other)
  Sender: FDA-Public Use
  Company Number: US-SA-2018SA295662

PATIENT
  Age: 39 Year
  Sex: Female

DRUGS (2)
  1. AUBAGIO [Suspect]
     Active Substance: TERIFLUNOMIDE
     Indication: MULTIPLE SCLEROSIS
     Dosage: 14 MG, QD
     Route: 048
     Dates: start: 20180507
  2. AUBAGIO [Suspect]
     Active Substance: TERIFLUNOMIDE
     Dosage: 14 MG, QD
     Route: 048
     Dates: start: 20190522

REACTIONS (5)
  - Colitis [Unknown]
  - Hepatic function abnormal [Unknown]
  - Hospitalisation [Unknown]
  - Multiple sclerosis relapse [Unknown]
  - Pruritus [Unknown]

NARRATIVE: CASE EVENT DATE: 20181001
